FAERS Safety Report 15822807 (Version 1)
Quarter: 2019Q1

REPORT INFORMATION
  Report Type: Spontaneous
  Country: US (occurrence: US)
  Receive Date: 20190114
  Receipt Date: 20190114
  Transmission Date: 20190417
  Serious: Yes (Death, Hospitalization)
  Sender: FDA-Public Use
  Company Number: US-CASPER PHARMA LLC-2018CAS000415

PATIENT
  Age: 65 Year
  Sex: Female

DRUGS (16)
  1. LACTULOSE. [Concomitant]
     Active Substance: LACTULOSE
     Indication: PRODUCT USED FOR UNKNOWN INDICATION
     Route: 048
  2. INSULIN [Concomitant]
     Active Substance: INSULIN NOS
     Indication: PRODUCT USED FOR UNKNOWN INDICATION
     Route: 065
  3. POTASSIUM PHOSPHATE?SODIUM PHOSPHATE [Concomitant]
     Indication: PRODUCT USED FOR UNKNOWN INDICATION
     Route: 065
  4. RIFAXIMIN. [Concomitant]
     Active Substance: RIFAXIMIN
     Indication: PRODUCT USED FOR UNKNOWN INDICATION
     Route: 065
  5. CIPRFLOXACIN [Concomitant]
     Indication: PERITONITIS BACTERIAL
     Route: 065
  6. ONDANSETRON [Concomitant]
     Active Substance: ONDANSETRON
     Indication: PRODUCT USED FOR UNKNOWN INDICATION
     Dosage: UNK, PRN
     Route: 065
  7. BISMUTH, METRONIDAZOLE, TETRACYCLIN [Suspect]
     Active Substance: BISMUTH SUBSALICYLATE\METRONIDAZOLE\TETRACYCLINE HYDROCHLORIDE
     Indication: PERITONITIS BACTERIAL
     Dosage: 500 MILLIGRAM
     Route: 042
  8. CIPRFLOXACIN [Concomitant]
     Indication: CHOLANGITIS INFECTIVE
  9. SPIRONOLACTONE. [Concomitant]
     Active Substance: SPIRONOLACTONE
     Indication: PRODUCT USED FOR UNKNOWN INDICATION
     Route: 065
  10. FUROSEMIDE. [Concomitant]
     Active Substance: FUROSEMIDE
     Indication: PRODUCT USED FOR UNKNOWN INDICATION
     Route: 065
  11. PROPRANOLOL [Concomitant]
     Active Substance: PROPRANOLOL HYDROCHLORIDE
     Indication: PRODUCT USED FOR UNKNOWN INDICATION
     Route: 065
  12. TENOFOVIR [Concomitant]
     Active Substance: TENOFOVIR
     Indication: PRODUCT USED FOR UNKNOWN INDICATION
     Route: 065
  13. BISMUTH, METRONIDAZOLE, TETRACYCLIN [Suspect]
     Active Substance: BISMUTH SUBSALICYLATE\METRONIDAZOLE\TETRACYCLINE HYDROCHLORIDE
     Indication: CHOLANGITIS INFECTIVE
     Dosage: 500 MILLIGRAM, TID
     Route: 048
  14. PANTOPRAZOLE [Concomitant]
     Active Substance: PANTOPRAZOLE
     Indication: PRODUCT USED FOR UNKNOWN INDICATION
     Route: 065
  15. TRAMADOL. [Concomitant]
     Active Substance: TRAMADOL
     Indication: PRODUCT USED FOR UNKNOWN INDICATION
     Route: 065
  16. MORPHINE [Concomitant]
     Active Substance: MORPHINE
     Indication: PRODUCT USED FOR UNKNOWN INDICATION
     Dosage: UNK, PRN
     Route: 065

REACTIONS (2)
  - Toxic encephalopathy [Fatal]
  - Product use in unapproved indication [Unknown]
